FAERS Safety Report 7076268-2 (Version None)
Quarter: 2010Q4

REPORT INFORMATION
  Report Type: 
  Country: None (occurrence: None)
  Receive Date: 20101101
  Receipt Date: 20101022
  Transmission Date: 20110411
  Serious: Yes (Other)
  Sender: FDA-Public Use
  Company Number: US-JNJFOC-20101001264

PATIENT
  Sex: Female
  Weight: 72.12 kg

DRUGS (3)
  1. LEVAQUIN [Suspect]
     Indication: PNEUMONIA
     Route: 048
  2. AZITHROMYCIN [Concomitant]
     Indication: PNEUMONIA
     Route: 048
  3. METHYLPREDNISOLONE [Concomitant]
     Indication: PNEUMONIA
     Route: 048

REACTIONS (8)
  - DYSGEUSIA [None]
  - FAECES DISCOLOURED [None]
  - FIBROMYALGIA [None]
  - MALAISE [None]
  - NAUSEA [None]
  - PAIN [None]
  - PAROSMIA [None]
  - RHEUMATOID ARTHRITIS [None]
